FAERS Safety Report 4963059-9 (Version None)
Quarter: 2006Q1

REPORT INFORMATION
  Report Type: 
  Country: None (occurrence: None)
  Receive Date: 20060331
  Receipt Date: 20060328
  Transmission Date: 20060701
  Serious: Yes (Hospitalization)
  Sender: FDA-Public Use
  Company Number: 06-013A

PATIENT
  Sex: Male

DRUGS (1)
  1. LORTAB [Suspect]
     Dates: end: 20050831

REACTIONS (3)
  - ABDOMINAL PAIN [None]
  - HEADACHE [None]
  - LARGE INTESTINE PERFORATION [None]
